FAERS Safety Report 4383424-0 (Version None)
Quarter: 2004Q2

REPORT INFORMATION
  Report Type: 
  Country: None (occurrence: None)
  Receive Date: 20040618
  Receipt Date: 20040608
  Transmission Date: 20050107
  Serious: Yes (Other)
  Sender: FDA-Public Use
  Company Number: 2004213936GB

PATIENT
  Age: 79 Year
  Sex: Male
  Weight: 74 kg

DRUGS (7)
  1. CELEBREX [Suspect]
     Dosage: 200 MG, QD, ORAL
     Route: 048
     Dates: start: 20010121
  2. CIMETIDINE [Concomitant]
  3. TEMAZEPAM [Concomitant]
  4. INDAPAMIDE [Concomitant]
  5. QVAR (BECLOMETASONE DIPROPIONATE) [Concomitant]
  6. SALBUTOL (SALBUTAMOL) [Concomitant]
  7. FLUVASTATIN (FLUVASTATIN) [Concomitant]

REACTIONS (1)
  - AMAUROSIS FUGAX [None]
